FAERS Safety Report 7415891-X (Version None)
Quarter: 2011Q2

REPORT INFORMATION
  Report Type: 
  Country: None (occurrence: None)
  Receive Date: 20110414
  Receipt Date: 20110408
  Transmission Date: 20111010
  Serious: Yes (Hospitalization)
  Sender: FDA-Public Use
  Company Number: PHHO2010FR18185

PATIENT
  Sex: Female
  Weight: 59 kg

DRUGS (12)
  1. BACTRIM [Concomitant]
  2. CELLCEPT [Concomitant]
     Indication: RENAL TRANSPLANT
     Dosage: 1.5 MG, BID
     Route: 048
  3. TEMERIT [Concomitant]
  4. ROVALCYTE [Concomitant]
  5. LANTUS [Concomitant]
  6. CORTANCYL [Concomitant]
     Indication: RENAL TRANSPLANT
     Dosage: 10 MG, DAILY
     Route: 048
  7. SANDIMMUNE [Suspect]
     Indication: RENAL TRANSPLANT
     Dosage: 2 UNK, BID
     Route: 048
     Dates: start: 20101122
  8. NEORAL [Suspect]
     Indication: RENAL TRANSPLANT
     Dosage: UNK
     Route: 048
     Dates: start: 20101012
  9. INIPOMP [Concomitant]
  10. AMLODIPINE BESYLATE [Concomitant]
     Indication: HYPERTENSION
  11. NOCTRAN [Concomitant]
  12. NOVORAPID [Concomitant]

REACTIONS (3)
  - HYPERTHERMIA [None]
  - DYSURIA [None]
  - PYREXIA [None]
